FAERS Safety Report 7361355-1 (Version None)
Quarter: 2011Q1

REPORT INFORMATION
  Report Type: 
  Country: None (occurrence: None)
  Receive Date: 20110318
  Receipt Date: 20110316
  Transmission Date: 20110831
  Serious: Yes (Hospitalization)
  Sender: FDA-Public Use
  Company Number: B0706319A

PATIENT
  Sex: Female

DRUGS (3)
  1. NIMESULIDE [Suspect]
     Indication: TOOTH ABSCESS
     Route: 002
     Dates: start: 20110304, end: 20110305
  2. AUGMENTIN '125' [Suspect]
     Indication: TOOTH ABSCESS
     Dosage: 2G PER DAY
     Route: 048
     Dates: start: 20110304, end: 20110305
  3. OKI [Suspect]
     Indication: TOOTH ABSCESS
     Dosage: 80MG PER DAY
     Route: 048
     Dates: start: 20110304, end: 20110305

REACTIONS (2)
  - PRURIGO [None]
  - URTICARIA [None]
